FAERS Safety Report 9649713 (Version 1)
Quarter: 2013Q4

REPORT INFORMATION
  Report Type: Spontaneous
  Country: JP (occurrence: JP)
  Receive Date: 20131028
  Receipt Date: 20131028
  Transmission Date: 20140711
  Serious: Yes (Other)
  Sender: FDA-Public Use
  Company Number: JP-B.I. PHARMACEUTICALS,INC./RIDGEFIELD-2013-BI-33604NB

PATIENT
  Age: 87 Year
  Sex: Female

DRUGS (4)
  1. TRAZENTA [Suspect]
     Indication: DIABETES MELLITUS
     Dosage: 5 MG
     Route: 048
     Dates: start: 20130913, end: 20130930
  2. LASIX / FUROSEMIDE [Concomitant]
     Indication: CARDIAC FAILURE CHRONIC
     Dosage: 20 MG
     Route: 048
  3. GASTER/ FAMOTIDINE [Concomitant]
     Indication: GASTRITIS
     Dosage: 10 MG
     Route: 048
  4. FRANDOL / ISOSORBIDE DINITRATE [Concomitant]
     Indication: ANGINA PECTORIS
     Dosage: 40 MG
     Route: 065

REACTIONS (2)
  - Cardiac failure chronic [Not Recovered/Not Resolved]
  - Oliguria [Not Recovered/Not Resolved]
